FAERS Safety Report 11922664 (Version 1)
Quarter: 2016Q1

REPORT INFORMATION
  Report Type: Spontaneous
  Country: MX (occurrence: MX)
  Receive Date: 20160115
  Receipt Date: 20160115
  Transmission Date: 20160526
  Serious: Yes (Death)
  Sender: FDA-Public Use
  Company Number: MX-HQ SPECIALTY-MX-2015INT000746

PATIENT

DRUGS (2)
  1. MITOMYCIN C [Suspect]
     Active Substance: MITOMYCIN
     Indication: METASTASES TO PERITONEUM
     Dosage: 3.3 MG/M2/L FOR 90 MIN AT 40.5 DEGREES
     Route: 033
  2. CISPLATIN. [Suspect]
     Active Substance: CISPLATIN
     Indication: METASTASES TO PERITONEUM
     Dosage: 25 MG/M2/L FOR 90 MIN AT 40.5 DEGREES
     Route: 033

REACTIONS (1)
  - Post procedural haemorrhage [Fatal]
